FAERS Safety Report 9689745 (Version 2)
Quarter: 2014Q2

REPORT INFORMATION
  Report Type: Report from Study
  Country: CA (occurrence: CA)
  Receive Date: 20131115
  Receipt Date: 20140522
  Transmission Date: 20141212
  Serious: Yes (Other)
  Sender: FDA-Public Use
  Company Number: CA-JNJFOC-20131106783

PATIENT
  Sex: Female
  Weight: 67 kg

DRUGS (7)
  1. REMICADE [Suspect]
     Indication: CROHN^S DISEASE
     Route: 042
     Dates: start: 20131107
  2. REMICADE [Suspect]
     Indication: CROHN^S DISEASE
     Route: 042
     Dates: start: 20111013
  3. VITAMIN B-12 INJECTIONS [Concomitant]
     Route: 065
  4. IMURAN [Concomitant]
     Route: 065
  5. IRON [Concomitant]
     Route: 065
  6. CALCIUM [Concomitant]
     Route: 065
  7. ELTROXIN [Concomitant]
     Route: 065

REACTIONS (1)
  - Wound [Recovered/Resolved]
